FAERS Safety Report 5870751-0 (Version None)
Quarter: 2008Q3

REPORT INFORMATION
  Report Type: 
  Country: None (occurrence: None)
  Receive Date: 20080904
  Receipt Date: 20080902
  Transmission Date: 20090109
  Serious: Yes (Death)
  Sender: FDA-Public Use
  Company Number: LT-EISAI MEDICAL RESEARCH-E2020-03297-CLI-LT

PATIENT
  Sex: Female
  Weight: 49 kg

DRUGS (5)
  1. DONEPEZIL HCL [Suspect]
     Indication: DEMENTIA ALZHEIMER'S TYPE
     Dosage: DOUBLE-BLIND
     Route: 048
     Dates: start: 20080723, end: 20080821
  2. RAMIPRILUM [Concomitant]
     Indication: HYPERTENSION
     Dosage: 5 MG
     Route: 048
     Dates: start: 20030101, end: 20080821
  3. GLICERIL TRINITRATE [Concomitant]
     Indication: CORONARY ARTERY DISEASE
     Dosage: 2.6 MG
     Route: 048
     Dates: start: 20080117, end: 20080821
  4. CALCIGRAN FORTE [Concomitant]
     Indication: OSTEOPOROSIS
     Dosage: 1 TABLET
     Route: 048
     Dates: start: 20030315, end: 20080821
  5. FOSAVANCE [Concomitant]
     Indication: OSTEOPOROSIS
     Dosage: 1 TABLET
     Route: 048
     Dates: start: 20030315, end: 20080821

REACTIONS (1)
  - GASTRIC ULCER HAEMORRHAGE [None]
